FAERS Safety Report 25370580 (Version 1)
Quarter: 2025Q2

REPORT INFORMATION
  Report Type: Spontaneous
  Country: US (occurrence: US)
  Receive Date: 20250528
  Receipt Date: 20250528
  Transmission Date: 20250716
  Serious: Yes (Life-Threatening, Hospitalization, Other)
  Sender: PURDUE
  Company Number: US-NAPPMUNDI-GBR-2025-0125937

PATIENT
  Age: 44 Year
  Sex: Male

DRUGS (7)
  1. HYDROMORPHONE HYDROCHLORIDE [Suspect]
     Active Substance: HYDROMORPHONE HYDROCHLORIDE
     Indication: Drug withdrawal syndrome
     Route: 042
  2. HYDROMORPHONE HCL [Suspect]
     Active Substance: HYDROMORPHONE HYDROCHLORIDE
     Indication: Drug withdrawal syndrome
     Route: 042
  3. NALOXONE [Suspect]
     Active Substance: NALOXONE
     Indication: Drug withdrawal syndrome
     Route: 045
  4. DROPERIDOL [Suspect]
     Active Substance: DROPERIDOL
     Indication: Drug withdrawal syndrome
     Route: 065
  5. MIDAZOLAM [Suspect]
     Active Substance: MIDAZOLAM
     Indication: Drug withdrawal syndrome
     Route: 065
  6. FENTANYL [Suspect]
     Active Substance: FENTANYL
     Indication: Drug withdrawal syndrome
     Route: 065
  7. BUPRENORPHINE\NALOXONE [Suspect]
     Active Substance: BUPRENORPHINE\NALOXONE
     Indication: Drug withdrawal syndrome
     Route: 065

REACTIONS (2)
  - Respiratory failure [Unknown]
  - Somnolence [Unknown]
